FAERS Safety Report 7864532-6 (Version None)
Quarter: 2011Q4

REPORT INFORMATION
  Report Type: 
  Country: None (occurrence: None)
  Receive Date: 20111028
  Receipt Date: 20111021
  Transmission Date: 20120403
  Serious: No
  Sender: FDA-Public Use
  Company Number: US-PFIZER INC-2011226049

PATIENT
  Sex: Male
  Weight: 97.506 kg

DRUGS (21)
  1. CALCIUM CITRATE [Concomitant]
     Dosage: UNK
  2. ACETYLSALICYLIC ACID [Concomitant]
     Dosage: 81 MG, UNK
  3. CELEBREX [Suspect]
     Indication: PAIN
     Dosage: UNK
  4. BIOTIN [Concomitant]
     Dosage: UNK
  5. CELEBREX [Suspect]
     Indication: CERVICAL SPINAL STENOSIS
  6. MOBIC [Suspect]
     Indication: PAIN
     Dosage: UNK
  7. SYMBICORT [Concomitant]
     Indication: ASTHMA
     Dosage: UNK
  8. PROVIGIL [Concomitant]
     Indication: NARCOLEPSY
     Dosage: UNK
  9. PREVACID [Concomitant]
     Dosage: 30 MG, DAILY
  10. SINGULAIR [Concomitant]
     Indication: ASTHMA
     Dosage: UNK
  11. SYSTANE [Concomitant]
     Indication: DRY EYE
     Dosage: UNK
  12. MULTI-VITAMINS [Concomitant]
     Dosage: UNK
  13. CIALIS [Concomitant]
     Indication: ERECTILE DYSFUNCTION
     Dosage: 5 MG, DAILY
     Route: 048
  14. FLECTOR [Suspect]
     Indication: CERVICAL SPINAL STENOSIS
  15. VIOXX [Suspect]
     Indication: PAIN
     Dosage: UNK
  16. CIALIS [Concomitant]
     Indication: PROSTATE CANCER
  17. FLECTOR [Suspect]
     Indication: PAIN
     Dosage: UNK
     Route: 061
     Dates: start: 20110920
  18. MOBIC [Suspect]
     Indication: CERVICAL SPINAL STENOSIS
  19. VIOXX [Suspect]
     Indication: CERVICAL SPINAL STENOSIS
  20. DOXYCYCLINE [Concomitant]
     Indication: OCULAR DISCOMFORT
     Dosage: 40 MG, DAILY
  21. VITAMIN D [Concomitant]
     Dosage: UNK

REACTIONS (2)
  - OEDEMA [None]
  - BLOOD PRESSURE INCREASED [None]
